FAERS Safety Report 7407279-2 (Version None)
Quarter: 2011Q2

REPORT INFORMATION
  Report Type: 
  Country: None (occurrence: None)
  Receive Date: 20110411
  Receipt Date: 20110401
  Transmission Date: 20111010
  Serious: Yes (Other)
  Sender: FDA-Public Use
  Company Number: PHHY2011US12914

PATIENT
  Sex: Female
  Weight: 160 kg

DRUGS (2)
  1. GILENYA [Suspect]
     Indication: MULTIPLE SCLEROSIS
     Dosage: 1 DF, QD
     Route: 048
     Dates: start: 20110203, end: 20110207
  2. NEXIUM [Concomitant]
     Dosage: UNK UKN, UNK
     Route: 048

REACTIONS (4)
  - PRURITUS [None]
  - MOUTH ULCERATION [None]
  - RASH [None]
  - THROAT TIGHTNESS [None]
